FAERS Safety Report 16421746 (Version 1)
Quarter: 2019Q2

REPORT INFORMATION
  Report Type: Spontaneous
  Country: US (occurrence: US)
  Receive Date: 20190612
  Receipt Date: 20190612
  Transmission Date: 20190711
  Serious: Yes (Hospitalization)
  Sender: FDA-Public Use
  Company Number: PHEH2019US024396

PATIENT
  Age: 67 Year
  Sex: Female

DRUGS (4)
  1. LENVATINIB [Interacting]
     Active Substance: LENVATINIB
     Indication: RENAL CANCER
  2. LENVATINIB [Interacting]
     Active Substance: LENVATINIB
     Indication: BONE CANCER
     Dosage: 18 MG, QD
     Route: 048
     Dates: start: 20190503
  3. AFINITOR [Interacting]
     Active Substance: EVEROLIMUS
     Indication: BONE CANCER
  4. AFINITOR [Suspect]
     Active Substance: EVEROLIMUS
     Indication: RENAL CANCER
     Dosage: 5 MG, QD QAM WITH FOOD
     Route: 048

REACTIONS (5)
  - Pelvic fracture [Unknown]
  - Labelled drug-food interaction medication error [Unknown]
  - Pain [Unknown]
  - Spinal fracture [Unknown]
  - Hip fracture [Unknown]

NARRATIVE: CASE EVENT DATE: 20190602
